FAERS Safety Report 20984905 (Version 1)
Quarter: 2022Q2

REPORT INFORMATION
  Report Type: Spontaneous
  Country: US (occurrence: None)
  Receive Date: 20220621
  Receipt Date: 20220621
  Transmission Date: 20220721
  Serious: No
  Sender: FDA-Public Use
  Company Number: US-ROCHE-2934895

PATIENT
  Sex: Male
  Weight: 75.364 kg

DRUGS (1)
  1. XELODA [Suspect]
     Active Substance: CAPECITABINE
     Indication: Colon neoplasm
     Dosage: ONGOING: YES
     Route: 048
     Dates: start: 20210528

REACTIONS (1)
  - Weight fluctuation [Unknown]
